FAERS Safety Report 6926376-9 (Version None)
Quarter: 2010Q3

REPORT INFORMATION
  Report Type: 
  Country: None (occurrence: None)
  Receive Date: 20100816
  Receipt Date: 20100816
  Transmission Date: 20110219
  Serious: Yes (Other)
  Sender: FDA-Public Use
  Company Number: None

PATIENT
  Sex: Male
  Weight: 42.3 kg

DRUGS (1)
  1. ROCURONIUM BROMIDE [Suspect]
     Indication: ENDOTRACHEAL INTUBATION
     Dosage: 50MG ONCE IV
     Route: 042
     Dates: start: 20100801

REACTIONS (2)
  - DRUG INEFFECTIVE [None]
  - PROCEDURAL COMPLICATION [None]
